FAERS Safety Report 18802019 (Version 2)
Quarter: 2022Q2

REPORT INFORMATION
  Report Type: Spontaneous
  Country: US (occurrence: US)
  Receive Date: 20210128
  Receipt Date: 20220406
  Transmission Date: 20220721
  Serious: Yes (Death, Other)
  Sender: FDA-Public Use
  Company Number: US-GLAXOSMITHKLINE-US2021GSK010782

PATIENT
  Sex: Male

DRUGS (21)
  1. ZANTAC [Suspect]
     Active Substance: RANITIDINE HYDROCHLORIDE
     Indication: Dyspepsia
     Dosage: 75 MG, QD
     Route: 065
     Dates: start: 201201, end: 201908
  2. ZANTAC [Suspect]
     Active Substance: RANITIDINE HYDROCHLORIDE
     Indication: Gastric ulcer
     Dosage: 75 MG, QD
     Route: 065
     Dates: start: 201201, end: 201908
  3. ZANTAC [Suspect]
     Active Substance: RANITIDINE HYDROCHLORIDE
     Dosage: UNK
  4. RANITIDINE [Suspect]
     Active Substance: RANITIDINE
     Indication: Dyspepsia
     Dosage: 75 MG, QD
     Route: 065
     Dates: start: 201201, end: 201908
  5. RANITIDINE [Suspect]
     Active Substance: RANITIDINE
     Indication: Gastric ulcer
     Dosage: 75 MG, QD
     Route: 065
     Dates: start: 201201, end: 201908
  6. RANITIDINE [Suspect]
     Active Substance: RANITIDINE
     Dosage: 75 MG
     Route: 065
     Dates: start: 201201, end: 201908
  7. RANITIDINE [Suspect]
     Active Substance: RANITIDINE
     Indication: Dyspepsia
     Dosage: 15 MG/ML, QD
     Route: 065
     Dates: start: 201907, end: 201908
  8. RANITIDINE [Suspect]
     Active Substance: RANITIDINE
     Indication: Gastric ulcer
     Dosage: 15 MG/ML PRESCRIPTION
     Route: 065
     Dates: start: 201907, end: 201908
  9. RANITIDINE [Suspect]
     Active Substance: RANITIDINE
     Dosage: UNK, QD
     Route: 065
     Dates: start: 201907, end: 201908
  10. RANITIDINE [Suspect]
     Active Substance: RANITIDINE
     Indication: Dyspepsia
     Dosage: 75 MG, QD
     Route: 065
     Dates: start: 201201, end: 201908
  11. RANITIDINE [Suspect]
     Active Substance: RANITIDINE
     Indication: Gastric ulcer
     Dosage: 75 MG
     Route: 065
     Dates: start: 201201, end: 201908
  12. RANITIDINE [Suspect]
     Active Substance: RANITIDINE
     Dosage: UNK
  13. RANITIDINE [Suspect]
     Active Substance: RANITIDINE
     Indication: Dyspepsia
     Dosage: 75 MG, QD
     Route: 065
     Dates: start: 201201, end: 201908
  14. RANITIDINE [Suspect]
     Active Substance: RANITIDINE
     Indication: Gastric ulcer
     Dosage: 75 MG
     Route: 065
     Dates: start: 201201, end: 201908
  15. RANITIDINE [Suspect]
     Active Substance: RANITIDINE
     Dosage: UNK
  16. RANITIDINE [Suspect]
     Active Substance: RANITIDINE
     Indication: Dyspepsia
     Dosage: 75 MG, QD
     Route: 065
     Dates: start: 201201, end: 201908
  17. RANITIDINE [Suspect]
     Active Substance: RANITIDINE
     Indication: Gastric ulcer
     Dosage: 75 MG
     Route: 065
     Dates: start: 201201, end: 201908
  18. RANITIDINE [Suspect]
     Active Substance: RANITIDINE
     Dosage: UNK
  19. RANITIDINE [Suspect]
     Active Substance: RANITIDINE
     Indication: Dyspepsia
     Dosage: 75 MG, QD
     Route: 065
     Dates: start: 201201, end: 201908
  20. RANITIDINE [Suspect]
     Active Substance: RANITIDINE
     Indication: Gastric ulcer
     Dosage: UNK
  21. RANITIDINE [Suspect]
     Active Substance: RANITIDINE
     Dosage: UNK

REACTIONS (3)
  - Colorectal cancer [Unknown]
  - Hepatic cancer [Unknown]
  - Neoplasm malignant [Fatal]
